FAERS Safety Report 4449582-4 (Version None)
Quarter: 2004Q3

REPORT INFORMATION
  Report Type: 
  Country: None (occurrence: None)
  Receive Date: 20040913
  Receipt Date: 20040913
  Transmission Date: 20050211
  Serious: Yes (Other)
  Sender: FDA-Public Use
  Company Number: None

PATIENT
  Age: 7 Year
  Sex: Male
  Weight: 22.6799 kg

DRUGS (3)
  1. CLONAZEPAM [Suspect]
     Indication: ANXIETY
     Dosage: 1 TABLET 1-1/2TAB 1X ORAL
     Route: 048
     Dates: start: 20040827, end: 20040906
  2. RISPERDAL [Concomitant]
  3. STRATTERA [Concomitant]

REACTIONS (6)
  - AGITATION [None]
  - ANGER [None]
  - CONFUSIONAL STATE [None]
  - EMOTIONAL DISORDER [None]
  - MOOD SWINGS [None]
  - PSYCHOMOTOR HYPERACTIVITY [None]
